FAERS Safety Report 7741796-0 (Version None)
Quarter: 2011Q3

REPORT INFORMATION
  Report Type: 
  Country: None (occurrence: None)
  Receive Date: 20110912
  Receipt Date: 20110902
  Transmission Date: 20111222
  Serious: No
  Sender: FDA-Public Use
  Company Number: US-BIOGENIDEC-2011BI034009

PATIENT
  Sex: Female

DRUGS (3)
  1. AVONEX [Suspect]
     Indication: MULTIPLE SCLEROSIS
     Route: 030
     Dates: start: 20050101
  2. POTASSIUM [Concomitant]
     Indication: MUSCLE SPASMS
  3. BACLOFEN [Concomitant]
     Indication: MUSCLE SPASMS
     Dates: start: 20050101

REACTIONS (12)
  - INJECTION SITE PAIN [None]
  - CHEST PAIN [None]
  - HYPOAESTHESIA [None]
  - HEADACHE [None]
  - MUSCLE SPASMS [None]
  - BURNING SENSATION [None]
  - FATIGUE [None]
  - RESPIRATORY DISORDER [None]
  - FORMICATION [None]
  - ADVERSE DRUG REACTION [None]
  - DYSPNOEA [None]
  - PAIN IN EXTREMITY [None]
